FAERS Safety Report 9778851 (Version 1)
Quarter: 2013Q4

REPORT INFORMATION
  Report Type: Spontaneous
  Country: RU (occurrence: RU)
  Receive Date: 20131223
  Receipt Date: 20131223
  Transmission Date: 20140711
  Serious: Yes (Other)
  Sender: FDA-Public Use
  Company Number: RU-PFIZER INC-2013360181

PATIENT
  Age: 77 Year
  Sex: Female

DRUGS (11)
  1. LIPRIMAR [Suspect]
     Indication: MYOCARDIAL ISCHAEMIA
     Dosage: 10 MG (1 TAB.), 1X/DAY BEFORE NIGHT
     Route: 048
     Dates: start: 20131103, end: 20131116
  2. LIPRIMAR [Suspect]
     Indication: ANGINA PECTORIS
  3. LIPRIMAR [Suspect]
     Indication: TACHYCARDIA
  4. CONCOR [Concomitant]
     Indication: MYOCARDIAL ISCHAEMIA
     Dosage: 2.5 MG (1/2 TAB.), 1X/DAY
     Route: 048
     Dates: start: 20131103, end: 20131116
  5. CONCOR [Concomitant]
     Indication: ANGINA PECTORIS
  6. CONCOR [Concomitant]
     Indication: TACHYCARDIA
  7. PRESTARIUM [Concomitant]
     Indication: MYOCARDIAL ISCHAEMIA
     Dosage: 5 MG (1/2 TAB.), 1X/DAY
     Route: 048
     Dates: start: 20131103, end: 20131116
  8. PRESTARIUM [Concomitant]
     Indication: ANGINA PECTORIS
  9. LOPIREL [Concomitant]
     Indication: MYOCARDIAL ISCHAEMIA
     Dosage: 75 MG, 1X/DAY
     Route: 048
     Dates: start: 20131103, end: 20131116
  10. LOPIREL [Concomitant]
     Indication: ANGINA PECTORIS
  11. LOPIREL [Concomitant]
     Indication: TACHYCARDIA

REACTIONS (2)
  - Vestibular disorder [Recovered/Resolved]
  - Asthenia [Not Recovered/Not Resolved]
